FAERS Safety Report 19318559 (Version 1)
Quarter: 2021Q2

REPORT INFORMATION
  Report Type: Spontaneous
  Country: US (occurrence: US)
  Receive Date: 20210527
  Receipt Date: 20210527
  Transmission Date: 20210717
  Serious: Yes (Other)
  Sender: FDA-Public Use
  Company Number: US-SLATE RUN PHARMACEUTICALS-21US000491

PATIENT

DRUGS (2)
  1. VANCOMYCIN HYDROCHLORIDE USP [Suspect]
     Active Substance: VANCOMYCIN HYDROCHLORIDE
     Indication: CORYNEBACTERIUM INFECTION
     Dosage: INFUSION RATE WAS DECREASED
     Route: 042
  2. VANCOMYCIN HYDROCHLORIDE USP [Suspect]
     Active Substance: VANCOMYCIN HYDROCHLORIDE
     Route: 042

REACTIONS (5)
  - Transplant rejection [Recovered/Resolved]
  - Off label use [Unknown]
  - Eosinophilia [Recovered/Resolved]
  - Red man syndrome [Recovered/Resolved]
  - Drug reaction with eosinophilia and systemic symptoms [Recovered/Resolved]
